FAERS Safety Report 15035068 (Version 1)
Quarter: 2018Q2

REPORT INFORMATION
  Report Type: Spontaneous
  Country: US (occurrence: US)
  Receive Date: 20180620
  Receipt Date: 20180620
  Transmission Date: 20180711
  Serious: No
  Sender: FDA-Public Use
  Company Number: US-PFIZER INC-2018245325

PATIENT
  Age: 48 Year
  Sex: Male
  Weight: 136.8 kg

DRUGS (1)
  1. SUTENT [Suspect]
     Active Substance: SUNITINIB MALATE
     Indication: METASTATIC RENAL CELL CARCINOMA
     Dosage: 50 MG, 1X/DAY
     Route: 048
     Dates: start: 2017

REACTIONS (5)
  - Fatigue [Unknown]
  - Dyspnoea [Unknown]
  - Palpitations [Unknown]
  - Pain [Unknown]
  - Viral infection [Recovered/Resolved]
